FAERS Safety Report 7763322-2 (Version None)
Quarter: 2011Q3

REPORT INFORMATION
  Report Type: 
  Country: None (occurrence: None)
  Receive Date: 20110920
  Receipt Date: 20110711
  Transmission Date: 20111222
  Serious: No
  Sender: FDA-Public Use
  Company Number: US-BAYER-2011-060985

PATIENT
  Sex: Male

DRUGS (5)
  1. CALCIUM CARBONATE [Concomitant]
     Route: 048
  2. ALEVE (CAPLET) [Suspect]
     Dosage: 1 TAB ONCE DAILY
     Route: 048
  3. MUPIROCIN [Concomitant]
     Route: 061
  4. NEPRESOL [Concomitant]
     Route: 048
  5. VITAMIN TAB [Concomitant]
     Route: 048

REACTIONS (1)
  - IMPAIRED HEALING [None]
